FAERS Safety Report 7085922-8 (Version None)
Quarter: 2010Q4

REPORT INFORMATION
  Report Type: 
  Country: None (occurrence: None)
  Receive Date: 20101105
  Receipt Date: 20100324
  Transmission Date: 20110411
  Serious: Yes (Other)
  Sender: FDA-Public Use
  Company Number: US-BAYER-201010626NA

PATIENT
  Age: 44 Year
  Sex: Female
  Weight: 99 kg

DRUGS (12)
  1. YASMIN [Suspect]
     Indication: PREMENSTRUAL SYNDROME
     Route: 048
     Dates: start: 20020101, end: 20080101
  2. ZITHROMYCAIN [Concomitant]
     Dosage: MULTIPLE TIMES
  3. TOPAMAX [Concomitant]
     Dosage: AS USED: 25 MG  UNIT DOSE: 25 MG
     Route: 048
  4. SPRING VALLEY [Concomitant]
     Dates: start: 20090101
  5. SARAFEM [Concomitant]
     Dosage: EVERY DAY
  6. LYRICA [Concomitant]
     Dosage: TOTAL DAILY DOSE: 150 MG  UNIT DOSE: 75 MG
  7. NEURONTIN [Concomitant]
     Dosage: 300 MG ONCE A DAY AND 600 MG AT BEDTIME
  8. HYDROCODONE [Concomitant]
  9. FROVA [Concomitant]
  10. LIPITOR [Concomitant]
  11. LIPITOR [Concomitant]
  12. LIPITOR [Concomitant]

REACTIONS (13)
  - ABASIA [None]
  - APHASIA [None]
  - CEREBROVASCULAR ACCIDENT [None]
  - CONFUSIONAL STATE [None]
  - DIZZINESS [None]
  - DYSARTHRIA [None]
  - HEADACHE [None]
  - HYPOAESTHESIA [None]
  - MOTOR DYSFUNCTION [None]
  - MUSCULAR WEAKNESS [None]
  - PARAESTHESIA [None]
  - SPEECH DISORDER [None]
  - VISION BLURRED [None]
